FAERS Safety Report 16474414 (Version 1)
Quarter: 2019Q3

REPORT INFORMATION
  Report Type: Spontaneous
  Country: US (occurrence: US)
  Receive Date: 20190624
  Receipt Date: 20190624
  Transmission Date: 20191004
  Serious: Yes (Other)
  Sender: FDA-Public Use
  Company Number: None

PATIENT
  Age: 56 Year
  Sex: Female

DRUGS (4)
  1. MELATONIN [Concomitant]
     Active Substance: MELATONIN
  2. CEPACOL EXTRA STRENGTH SORE THROAT HONEY LEMON [Suspect]
     Active Substance: BENZOCAINE\MENTHOL
     Indication: OROPHARYNGEAL PAIN
     Dosage: ?          QUANTITY:1 LOZENGE;OTHER FREQUENCY:EVERY 2 HOURS;OTHER ROUTE:DISSOLVE SLOWLY IN MOUTH?
     Dates: start: 20190623, end: 20190623
  3. PROBIOTICS [Concomitant]
     Active Substance: PROBIOTICS NOS
  4. TYLENOL [Concomitant]
     Active Substance: ACETAMINOPHEN

REACTIONS (6)
  - Product taste abnormal [None]
  - Headache [None]
  - Nausea [None]
  - Hyperhidrosis [None]
  - Vomiting [None]
  - Sensory disturbance [None]

NARRATIVE: CASE EVENT DATE: 20190622
